FAERS Safety Report 25195156 (Version 3)
Quarter: 2025Q2

REPORT INFORMATION
  Report Type: Report from Study
  Country: US (occurrence: US)
  Receive Date: 20250415
  Receipt Date: 20250423
  Transmission Date: 20250716
  Serious: No
  Sender: SANOFI AVENTIS
  Company Number: US-SA-2025SA102992

PATIENT
  Age: 51 Year
  Sex: Male

DRUGS (5)
  1. CAPLACIZUMAB-YHDP [Suspect]
     Active Substance: CAPLACIZUMAB-YHDP
     Indication: Thrombotic thrombocytopenic purpura
     Dosage: 11 MG DOSE PER KG, QD
     Route: 058
     Dates: start: 20250322, end: 20250413
  2. CAPLACIZUMAB-YHDP [Suspect]
     Active Substance: CAPLACIZUMAB-YHDP
     Indication: Thrombotic thrombocytopenic purpura
     Dosage: 11 MG DOSE PER KG, QD
     Route: 058
     Dates: start: 20250322, end: 20250413
  3. CAPLACIZUMAB-YHDP [Suspect]
     Active Substance: CAPLACIZUMAB-YHDP
     Indication: Thrombotic thrombocytopenic purpura
     Dosage: 11 MG DOSE PER KG, QD
     Route: 058
     Dates: start: 20250322, end: 20250413
  4. CAPLACIZUMAB-YHDP [Suspect]
     Active Substance: CAPLACIZUMAB-YHDP
     Indication: Thrombotic thrombocytopenic purpura
     Dosage: 11 MG DOSE PER KG, QD
     Route: 058
     Dates: start: 20250322, end: 20250413
  5. PREDNISONE [Concomitant]
     Active Substance: PREDNISONE
     Indication: Laboratory test abnormal
     Dates: start: 2025

REACTIONS (1)
  - Burning sensation [Unknown]

NARRATIVE: CASE EVENT DATE: 20250101
